FAERS Safety Report 8329459-4 (Version None)
Quarter: 2012Q2

REPORT INFORMATION
  Report Type: 
  Country: None (occurrence: None)
  Receive Date: 20120502
  Receipt Date: 20120423
  Transmission Date: 20120825
  Serious: Yes (Hospitalization)
  Sender: FDA-Public Use
  Company Number: SE-ROCHE-1050043

PATIENT
  Sex: Female
  Weight: 75 kg

DRUGS (14)
  1. COPEGUS [Suspect]
     Indication: HEPATITIS C
     Route: 048
     Dates: start: 20110601
  2. PEGASYS [Suspect]
     Indication: HEPATITIS C
     Route: 058
     Dates: start: 20110601
  3. OMEPRAZOLE [Concomitant]
     Route: 048
     Dates: start: 20100711
  4. POTASSIUM CHLORIDE [Concomitant]
     Indication: BLOOD POTASSIUM DECREASED
     Dosage: 1.5-3 G
     Route: 048
  5. ZOLOFT [Concomitant]
     Indication: DEPRESSION
     Route: 048
     Dates: start: 19900101
  6. CALCICHEW D3 [Concomitant]
     Route: 048
     Dates: start: 20110711
  7. SODIUM BICARBONATE [Concomitant]
     Indication: ACIDOSIS
     Dosage: 100-200 ML, WHEN NEEDED
     Route: 042
  8. ARANESP [Concomitant]
     Indication: ANAEMIA
     Route: 058
     Dates: start: 20110518
  9. ARANESP [Concomitant]
     Route: 058
  10. HERACILLIN [Concomitant]
     Indication: ABSCESS
     Route: 048
     Dates: start: 20110722
  11. OXYCONTIN [Concomitant]
     Indication: PAIN
     Route: 048
     Dates: start: 20110801
  12. FILGRASTIM [Concomitant]
     Indication: LEUKOPENIA
     Dosage: WHEN NEEDED
     Route: 058
  13. OXYCODONE HCL [Concomitant]
     Indication: PAIN
     Dosage: WHEN NEEDED
     Route: 048
     Dates: start: 20110801
  14. TACROLIMUS [Concomitant]
     Indication: IMMUNOSUPPRESSION
     Route: 048
     Dates: start: 20100217

REACTIONS (3)
  - SEPSIS [None]
  - EXTRADURAL ABSCESS [None]
  - ANAEMIA [None]
